FAERS Safety Report 4836803-9 (Version None)
Quarter: 2005Q4

REPORT INFORMATION
  Report Type: 
  Country: None (occurrence: None)
  Receive Date: 20051123
  Receipt Date: 20050927
  Transmission Date: 20060501
  Serious: Yes (Hospitalization, Other)
  Sender: FDA-Public Use
  Company Number: US-MERCK-0509USA04409

PATIENT
  Age: 78 Year
  Sex: Female
  Weight: 53 kg

DRUGS (7)
  1. VIOXX [Suspect]
     Indication: OSTEOARTHRITIS
     Route: 048
     Dates: start: 20030601, end: 20030101
  2. VIOXX [Suspect]
     Route: 048
     Dates: start: 20030901, end: 20040621
  3. VIOXX [Suspect]
     Indication: OEDEMA PERIPHERAL
     Route: 048
     Dates: start: 20030601, end: 20030101
  4. VIOXX [Suspect]
     Route: 048
     Dates: start: 20030901, end: 20040621
  5. ZOLOFT [Concomitant]
     Indication: DEPRESSION
     Route: 048
  6. VITAMINS (UNSPECIFIED) [Concomitant]
     Route: 048
  7. OS-CAL [Concomitant]
     Route: 048

REACTIONS (5)
  - CEREBRAL THROMBOSIS [None]
  - CEREBROVASCULAR ACCIDENT [None]
  - CONVULSION [None]
  - DEMENTIA ALZHEIMER'S TYPE [None]
  - SURGERY [None]
